FAERS Safety Report 8878827 (Version 1)
Quarter: 2012Q4

REPORT INFORMATION
  Report Type: 
  Country: US (occurrence: US)
  Receive Date: 20121026
  Receipt Date: 20121026
  Transmission Date: 20130627
  Serious: No
  Sender: FDA-Public Use
  Company Number: US-ASTRAZENECA-2011SE66065

PATIENT
  Age: 71 Year
  Sex: Female
  Weight: 71.7 kg

DRUGS (2)
  1. CRESTOR [Suspect]
     Route: 048
  2. OTHER MEDS [Concomitant]

REACTIONS (2)
  - Malaise [Unknown]
  - Gastric disorder [Unknown]
